FAERS Safety Report 5532301-8 (Version None)
Quarter: 2007Q4

REPORT INFORMATION
  Report Type: 
  Country: None (occurrence: None)
  Receive Date: 20071203
  Receipt Date: 20071127
  Transmission Date: 20080405
  Serious: Yes (Hospitalization)
  Sender: FDA-Public Use
  Company Number: PHBS2007JP16568

PATIENT
  Age: 17 Year
  Sex: Male

DRUGS (5)
  1. TEGRETOL [Suspect]
     Indication: EPILEPSY
     Dosage: 200 MG/DAY
     Route: 048
     Dates: start: 20070409, end: 20070522
  2. RINDERON [Concomitant]
     Dosage: 10MG
  3. RINDERON [Concomitant]
     Dosage: 6MG/D
  4. RINDERON [Concomitant]
     Dosage: 12MG
     Route: 042
  5. OSPOLOT [Concomitant]
     Indication: EPILEPSY
     Route: 048
     Dates: start: 20070409, end: 20070522

REACTIONS (29)
  - ABDOMINAL PAIN UPPER [None]
  - ALANINE AMINOTRANSFERASE INCREASED [None]
  - ASPARTATE AMINOTRANSFERASE INCREASED [None]
  - BLOOD LACTATE DEHYDROGENASE INCREASED [None]
  - CONJUNCTIVAL HYPERAEMIA [None]
  - CONVULSION [None]
  - DRUG HYPERSENSITIVITY [None]
  - DRUG RASH WITH EOSINOPHILIA AND SYSTEMIC SYMPTOMS [None]
  - EPILEPSY [None]
  - ERYTHEMA [None]
  - FATIGUE [None]
  - GAMMA-GLUTAMYLTRANSFERASE [None]
  - GENERALISED ERYTHEMA [None]
  - HEPATIC FUNCTION ABNORMAL [None]
  - LEUKOCYTOSIS [None]
  - LOSS OF CONSCIOUSNESS [None]
  - LYMPHADENOPATHY [None]
  - LYMPHOCYTE STIMULATION TEST POSITIVE [None]
  - MALAISE [None]
  - MEASLES [None]
  - MUCOSAL ULCERATION [None]
  - NAUSEA [None]
  - OCULAR DISCOMFORT [None]
  - PARAESTHESIA [None]
  - PHARYNGOLARYNGEAL PAIN [None]
  - PYREXIA [None]
  - RASH [None]
  - RESPIRATORY DISORDER [None]
  - VERTIGO [None]
